FAERS Safety Report 6757566-6 (Version None)
Quarter: 2010Q2

REPORT INFORMATION
  Report Type: 
  Country: None (occurrence: None)
  Receive Date: 20100607
  Receipt Date: 20100525
  Transmission Date: 20101027
  Serious: Yes (Hospitalization)
  Sender: FDA-Public Use
  Company Number: CA-CELGENEUS-028-50794-10052262

PATIENT
  Age: 61 Year
  Sex: Male
  Weight: 82.5 kg

DRUGS (3)
  1. VIDAZA [Suspect]
     Route: 058
     Dates: start: 20100205, end: 20100510
  2. EXJADE [Suspect]
     Indication: IRON OVERLOAD
     Route: 065
     Dates: end: 20100501
  3. ATORVASTATIN [Suspect]
     Route: 065
     Dates: end: 20100401

REACTIONS (1)
  - NEUROPATHY PERIPHERAL [None]
